FAERS Safety Report 6288798-1 (Version None)
Quarter: 2009Q3

REPORT INFORMATION
  Report Type: 
  Country: None (occurrence: None)
  Receive Date: 20090729
  Receipt Date: 20090717
  Transmission Date: 20100115
  Serious: Yes (Hospitalization, Other)
  Sender: FDA-Public Use
  Company Number: SG-PFIZER INC-2009243324

PATIENT
  Age: 59 Year

DRUGS (1)
  1. SULFASALAZINE [Suspect]
     Dosage: FREQUENCY: TWICE, DAILY;
     Route: 048
     Dates: start: 20080502, end: 20080705

REACTIONS (1)
  - PANCYTOPENIA [None]
